FAERS Safety Report 8621778-7 (Version None)
Quarter: 2012Q3

REPORT INFORMATION
  Report Type: 
  Country: None (occurrence: None)
  Receive Date: 20120821
  Receipt Date: 20120821
  Transmission Date: 20120928
  Serious: Yes (Other)
  Sender: FDA-Public Use
  Company Number: None

PATIENT
  Sex: Male

DRUGS (1)
  1. LUPRON DEPOT [Suspect]
     Dosage: 30MG EVERY 3 MONTH IM
     Route: 030
     Dates: start: 20120229, end: 20120817

REACTIONS (1)
  - INJECTION SITE ABSCESS STERILE [None]
